FAERS Safety Report 6765172-2 (Version None)
Quarter: 2010Q2

REPORT INFORMATION
  Report Type: 
  Country: None (occurrence: None)
  Receive Date: 20100610
  Receipt Date: 20100610
  Transmission Date: 20101027
  Serious: No
  Sender: FDA-Public Use
  Company Number: None

PATIENT
  Age: 17 Year
  Sex: Female
  Weight: 59.1 kg

DRUGS (3)
  1. VALPROIC ACID [Suspect]
     Indication: MYOCLONUS
     Dosage: 2 CAP TWICE A DAY ORAL,
     Route: 048
     Dates: start: 20100513, end: 20100514
  2. CLONAZEPAM [Suspect]
     Indication: MYOCLONUS
     Dosage: 1 AM ORAL; 2 PM ORAL (-4 TABLETS TOTAL GIVEN)
     Route: 048
     Dates: start: 20100514
  3. KEPPRA [Suspect]

REACTIONS (1)
  - DYSKINESIA [None]
